FAERS Safety Report 4561504-4 (Version None)
Quarter: 2005Q1

REPORT INFORMATION
  Report Type: 
  Country: None (occurrence: None)
  Receive Date: 20050121
  Receipt Date: 20050111
  Transmission Date: 20050727
  Serious: Yes (Hospitalization)
  Sender: FDA-Public Use
  Company Number: 211558

PATIENT
  Sex: Female

DRUGS (4)
  1. XOLAIR [Suspect]
     Indication: ASTHMA
  2. PREDNISONE [Concomitant]
  3. ALBUTEROL NEBULIZER (ALBUTEROL, ALBUTEROL SULFATE) [Concomitant]
  4. ASTHMA MEDICATIONS NOS (ANTIASTHMATIC DRUG NOS) [Concomitant]

REACTIONS (2)
  - ASTHMA [None]
  - INJECTION SITE EXTRAVASATION [None]
